FAERS Safety Report 5882084-7 (Version None)
Quarter: 2008Q3

REPORT INFORMATION
  Report Type: 
  Country: None (occurrence: None)
  Receive Date: 20080912
  Receipt Date: 20080722
  Transmission Date: 20090109
  Serious: No
  Sender: FDA-Public Use
  Company Number: US-ABBOTT-08P-163-0465384-00

PATIENT
  Sex: Female
  Weight: 72.64 kg

DRUGS (17)
  1. HUMIRA [Suspect]
     Indication: CROHN'S DISEASE
     Dosage: STARTER DOSE
     Route: 058
     Dates: start: 20070701
  2. HUMIRA [Suspect]
     Dosage: X1
  3. HUMIRA [Suspect]
  4. VISTERAL [Concomitant]
     Indication: CROHN'S DISEASE
     Route: 048
  5. VENLAFAXINE HYDROCHLORIDE [Concomitant]
     Indication: DEPRESSION
     Route: 048
  6. BUSPIRONE HYDROCHLORIDE [Concomitant]
     Indication: DEPRESSION
     Route: 048
  7. METHYLPHENIDATE HCL [Concomitant]
     Indication: DEPRESSION
     Route: 048
  8. SEROQUEL [Concomitant]
     Indication: DEPRESSION
     Dosage: 1 PILL IN AM + NOON, 2 PILLS IN PM, 3 HS
     Route: 048
  9. BUDESONIDE [Concomitant]
     Indication: CROHN'S DISEASE
     Route: 048
     Dates: start: 20070101
  10. AZATHIOPRINE [Concomitant]
     Indication: CROHN'S DISEASE
     Route: 048
     Dates: start: 20000101
  11. RISEDRONATE SODIUM [Concomitant]
     Indication: OSTEOPOROSIS PROPHYLAXIS
     Route: 048
  12. ESOMEPRAZOLE MAGNESIUM [Concomitant]
     Indication: GASTROOESOPHAGEAL REFLUX DISEASE
     Route: 048
  13. LISINOPRIL [Concomitant]
     Indication: HYPERTENSION
     Route: 048
  14. TOPROL-XL [Concomitant]
     Indication: HYPERTENSION
     Route: 048
     Dates: start: 19990101
  15. ESTROGENS CONJUGATED [Concomitant]
     Indication: HYSTERECTOMY
     Route: 048
     Dates: start: 20040101
  16. GABAPENTIN [Concomitant]
     Indication: PAIN
     Dosage: 1 IN A.M, 2 AT BEDTIME
     Route: 048
     Dates: start: 20080601
  17. VICODIN [Concomitant]
     Indication: PAIN
     Route: 048
     Dates: start: 20050101

REACTIONS (5)
  - DIARRHOEA [None]
  - PYREXIA [None]
  - VOMITING [None]
  - WEIGHT DECREASED [None]
  - WHITE BLOOD CELL COUNT INCREASED [None]
